FAERS Safety Report 21720222 (Version 1)
Quarter: 2022Q4

REPORT INFORMATION
  Report Type: Spontaneous
  Country: GR (occurrence: GR)
  Receive Date: 20221213
  Receipt Date: 20221213
  Transmission Date: 20230113
  Serious: Yes (Other)
  Sender: FDA-Public Use
  Company Number: None

PATIENT
  Age: 80 Year
  Sex: Male
  Weight: 115 kg

DRUGS (15)
  1. GAVISCON [Suspect]
     Active Substance: ALUMINUM HYDROXIDE\MAGNESIUM CARBONATE
     Indication: Gastrooesophageal reflux prophylaxis
     Dosage: 1 CHW.TAB
     Route: 048
     Dates: start: 20221125, end: 20221125
  2. GAVISCON [Suspect]
     Active Substance: ALUMINUM HYDROXIDE\MAGNESIUM CARBONATE
     Dosage: 2 CHW.TABS
     Route: 048
     Dates: start: 20221129, end: 20221129
  3. ARANESP [Concomitant]
     Active Substance: DARBEPOETIN ALFA
     Indication: Renal failure
     Dosage: , QW (80MCG/0.4ML) ONCE A WEEK
     Dates: start: 20120101
  4. OMALIN [Concomitant]
     Dosage: 800 MG
  5. ALLOPURINOL [Concomitant]
     Active Substance: ALLOPURINOL
     Indication: Hyperuricaemia
     Dosage: 300 MG, QD, ONCE A DAY
     Dates: start: 20120101
  6. ALSTERIDE [Concomitant]
     Indication: Benign prostatic hyperplasia
     Dosage: 1 MG
     Dates: start: 20120101
  7. SEVELAMER [Concomitant]
     Active Substance: SEVELAMER
     Indication: Hyperphosphataemia
     Dosage: 1 TABLET AT NOON
     Dates: start: 20120110
  8. SEVELAMER [Concomitant]
     Active Substance: SEVELAMER
     Indication: Hyperkalaemia
  9. LASIX [Concomitant]
     Active Substance: FUROSEMIDE
     Indication: Renal failure
     Dosage: 40 MG ONCE A DAY FROM MONDAY TO FRIDAY
  10. ALFURAL [Concomitant]
     Indication: Benign prostatic hyperplasia
     Dosage: 10 MG DAILY
     Dates: start: 20120101
  11. VITAMIN D3 [Concomitant]
     Active Substance: CHOLECALCIFEROL
     Dosage: 1 TAB DAILY
     Dates: start: 20220701
  12. SINTROM [Concomitant]
     Active Substance: ACENOCOUMAROL
     Indication: Atrial fibrillation
     Dosage: 3 MG
     Dates: start: 20150101
  13. PANTOPRAZOLE SODIUM [Concomitant]
     Active Substance: PANTOPRAZOLE SODIUM
     Indication: Gastrooesophageal reflux prophylaxis
     Dosage: 40 MG EVERY MORNING
     Dates: start: 20120101
  14. GLYCOPYRRONIUM\INDACATEROL [Concomitant]
     Active Substance: GLYCOPYRRONIUM\INDACATEROL
     Indication: Chronic obstructive pulmonary disease
     Dosage: (85+43) MCG
     Dates: start: 20170101
  15. TENORMIN [Concomitant]
     Active Substance: ATENOLOL
     Indication: Atrial fibrillation
     Dosage: 25 MG TWICE A DAY
     Dates: start: 20070101

REACTIONS (2)
  - Blood glucose abnormal [Recovered/Resolved]
  - Blood glucose abnormal [Recovered/Resolved]

NARRATIVE: CASE EVENT DATE: 20221125
